FAERS Safety Report 21933164 (Version 1)
Quarter: 2023Q1

REPORT INFORMATION
  Report Type: Spontaneous
  Country: FR (occurrence: FR)
  Receive Date: 20230131
  Receipt Date: 20230131
  Transmission Date: 20230417
  Serious: Yes (Other)
  Sender: FDA-Public Use
  Company Number: None

PATIENT
  Age: 74 Year
  Sex: Female
  Weight: 63 kg

DRUGS (6)
  1. ODEFSEY [Interacting]
     Active Substance: EMTRICITABINE\RILPIVIRINE HYDROCHLORIDE\TENOFOVIR ALAFENAMIDE FUMARATE
     Indication: HIV infection
     Dosage: 1 DOSAGE FORM
     Route: 048
     Dates: start: 20190807, end: 20210217
  2. FORTEO [Interacting]
     Active Substance: TERIPARATIDE
     Indication: Osteoporosis
     Dosage: 20?G/MONTH
     Route: 058
     Dates: start: 20200615, end: 20220115
  3. ELIQUIS [Concomitant]
     Active Substance: APIXABAN
  4. BISOPROLOL [Concomitant]
     Active Substance: BISOPROLOL
  5. LEVOTHYROXINE SODIUM [Concomitant]
     Active Substance: LEVOTHYROXINE SODIUM
  6. CALCIFEDIOL [Concomitant]
     Active Substance: CALCIFEDIOL

REACTIONS (1)
  - Virologic failure [Recovered/Resolved]

NARRATIVE: CASE EVENT DATE: 20200903
